FAERS Safety Report 7819893-0 (Version None)
Quarter: 2011Q4

REPORT INFORMATION
  Report Type: 
  Country: None (occurrence: None)
  Receive Date: 20111018
  Receipt Date: 20110210
  Transmission Date: 20120403
  Serious: No
  Sender: FDA-Public Use
  Company Number: US-ASTRAZENECA-2011SE08267

PATIENT
  Age: 64 Year
  Sex: Female

DRUGS (3)
  1. CRESTOR [Suspect]
     Route: 048
  2. SYMBICORT [Suspect]
     Dosage: 80/4.5 MCG DAILY
     Route: 055
  3. NEXIUM [Suspect]
     Route: 048

REACTIONS (2)
  - GASTROOESOPHAGEAL REFLUX DISEASE [None]
  - BONE DISORDER [None]
